FAERS Safety Report 11977367 (Version 2)
Quarter: 2016Q1

REPORT INFORMATION
  Report Type: Spontaneous
  Country: US (occurrence: US)
  Receive Date: 20160129
  Receipt Date: 20160208
  Transmission Date: 20160526
  Serious: Yes (Hospitalization)
  Sender: FDA-Public Use
  Company Number: US-PFIZER INC-2016043507

PATIENT
  Age: 74 Year
  Sex: Female

DRUGS (16)
  1. ASPIRIN 81 [Concomitant]
     Active Substance: ASPIRIN
     Dosage: UNK
  2. POTASSIUM CHLORIDE. [Concomitant]
     Active Substance: POTASSIUM CHLORIDE
     Dosage: UNK
  3. MUGARD [Concomitant]
     Dosage: UNK
  4. FISH OIL CONCENTRATE [Concomitant]
     Dosage: UNK
  5. MEGESTROL ACETATE. [Concomitant]
     Active Substance: MEGESTROL ACETATE
     Dosage: UNK
  6. LYSINE [Concomitant]
     Active Substance: LYSINE
     Dosage: UNK
  7. LORAZEPAM. [Concomitant]
     Active Substance: LORAZEPAM
     Dosage: UNK
  8. FLUCONAZOLE. [Concomitant]
     Active Substance: FLUCONAZOLE
     Dosage: UNK
  9. LIPITOR [Concomitant]
     Active Substance: ATORVASTATIN CALCIUM
     Dosage: UNK
  10. PREDNISONE. [Concomitant]
     Active Substance: PREDNISONE
     Dosage: UNK
  11. PANTOPRAZOLE SODIUM. [Concomitant]
     Active Substance: PANTOPRAZOLE SODIUM
     Dosage: UNK
  12. CALCIUM [Concomitant]
     Active Substance: CALCIUM
     Dosage: 600 MG, UNK
  13. ATENOLOL. [Concomitant]
     Active Substance: ATENOLOL
     Dosage: UNK
  14. IBRANCE [Suspect]
     Active Substance: PALBOCICLIB
     Dosage: 125 MG, DAILY (FOR 21 DAYS)
     Dates: start: 20151202
  15. EXEMESTANE. [Concomitant]
     Active Substance: EXEMESTANE
     Dosage: UNK
  16. XGEVA [Concomitant]
     Active Substance: DENOSUMAB
     Dosage: UNK

REACTIONS (7)
  - Pain [Unknown]
  - Asthenia [Unknown]
  - Unresponsive to stimuli [Unknown]
  - Hypokalaemia [Unknown]
  - Product use issue [Unknown]
  - Loss of consciousness [Unknown]
  - Weight decreased [Not Recovered/Not Resolved]
